FAERS Safety Report 9131360 (Version 1)
Quarter: 2013Q1

REPORT INFORMATION
  Report Type: Report from Study
  Country: US (occurrence: US)
  Receive Date: 20130301
  Receipt Date: 20130301
  Transmission Date: 20140127
  Serious: No
  Sender: FDA-Public Use
  Company Number: US-MYLANLABS-2012S1002732

PATIENT
  Age: 21 Year
  Sex: Female

DRUGS (5)
  1. AMNESTEEM CAPSULES [Suspect]
     Indication: ACNE
     Route: 048
     Dates: start: 201201, end: 201201
  2. CLARAVIS [Suspect]
     Indication: ACNE
     Route: 048
     Dates: start: 201111, end: 201111
  3. CLARAVIS [Suspect]
     Indication: ACNE
     Route: 048
     Dates: start: 201112, end: 201112
  4. NASONEX [Concomitant]
     Route: 045
  5. ORTHO TRI CYCLEN [Concomitant]
     Indication: ORAL CONTRACEPTION
     Route: 048

REACTIONS (1)
  - Depression [Recovered/Resolved]
